FAERS Safety Report 8011237-7 (Version None)
Quarter: 2011Q4

REPORT INFORMATION
  Report Type: 
  Country: None (occurrence: None)
  Receive Date: 20111222
  Receipt Date: 20111207
  Transmission Date: 20120403
  Serious: Yes (Hospitalization)
  Sender: FDA-Public Use
  Company Number: 1000025759

PATIENT
  Age: 61 Year
  Sex: Female

DRUGS (10)
  1. TEGRETOL [Suspect]
     Indication: PRODUCT USED FOR UNKNOWN INDICATION
     Dosage: 200 MG (200 MG, 1 IN 1 D), ORAL, 1800 MG, ONCE, ORAL
     Route: 048
     Dates: start: 20110430, end: 20110430
  2. LENDORMIN (BROTIZOLAM) (TABLETS) [Suspect]
     Indication: PRODUCT USED FOR UNKNOWN INDICATION
     Dosage: 0.25 MG (0.25 MG, 1 IN 1 D), ORAL, DOSE INGESTED NOT REPORTED (ONCE), ORAL
     Route: 048
     Dates: start: 20110430, end: 20110430
  3. TAVOR (LORAZEPAM) (LORAZEPAM) [Concomitant]
  4. ATENOLOL [Concomitant]
  5. ACETYLSALICYLIC ACID SRT [Concomitant]
  6. ESCITALOPRAM OXALATE [Suspect]
     Indication: DEPRESSION
     Dosage: 20 MG (20 MG, 1 IN 1 D), ORAL, 280 MG, ONCE, ORAL
     Route: 048
     Dates: start: 20110430, end: 20110430
  7. PRAZEPAM [Suspect]
     Indication: PRODUCT USED FOR UNKNOWN INDICATION
     Dosage: 150 MG, ONCE, ORAL
     Route: 048
     Dates: start: 20110430, end: 20110430
  8. ISOPTIN (VERAPAMIL HYDROCHLORIDE) (VERAPAMIL HYDROCHLORIDE) [Concomitant]
  9. SIMVASTATIN [Concomitant]
  10. METFORAL (METFORMIN HYDROCHLORIDE) (METFORMIN HYDROCHLORIDE) [Concomitant]

REACTIONS (4)
  - SOCIAL AVOIDANT BEHAVIOUR [None]
  - INTENTIONAL OVERDOSE [None]
  - DRUG LEVEL INCREASED [None]
  - MOOD ALTERED [None]
